FAERS Safety Report 8339162-2 (Version None)
Quarter: 2012Q2

REPORT INFORMATION
  Report Type: 
  Country: None (occurrence: None)
  Receive Date: 20120507
  Receipt Date: 20120501
  Transmission Date: 20120825
  Serious: No
  Sender: FDA-Public Use
  Company Number: US-PFIZER INC-2012108582

PATIENT
  Sex: Male
  Weight: 77.098 kg

DRUGS (2)
  1. BENZYLPENICILLIN POTASSIUM [Suspect]
     Dosage: UNK
  2. CODEINE [Suspect]
     Dosage: UNK

REACTIONS (2)
  - RASH [None]
  - ASTHMA [None]
